FAERS Safety Report 4727165-6 (Version None)
Quarter: 2005Q3

REPORT INFORMATION
  Report Type: 
  Country: None (occurrence: None)
  Receive Date: 20050726
  Receipt Date: 20050726
  Transmission Date: 20060218
  Serious: Yes (Other)
  Sender: FDA-Public Use
  Company Number: None

PATIENT
  Age: 76 Year
  Sex: Male
  Weight: 103.4 kg

DRUGS (15)
  1. TERAZOSIN [Suspect]
  2. FINASTERIDE [Concomitant]
  3. FUROSEMIDE [Concomitant]
  4. SYNTHROID [Concomitant]
  5. FERROUS S04 [Concomitant]
  6. TERAZOSIN HCL [Concomitant]
  7. LANOXIN [Concomitant]
  8. ALLOPURINOL [Concomitant]
  9. ALPRAZOLAM [Concomitant]
  10. PAROXETINE HCL [Concomitant]
  11. POTASSIUM CHLORIDE [Concomitant]
  12. AMIODARONE HCL [Concomitant]
  13. OMEPRAZOLE [Concomitant]
  14. SIMVASTATIN [Concomitant]
  15. CARVEDILOL [Concomitant]

REACTIONS (1)
  - HYPOTENSION [None]
